FAERS Safety Report 12170963 (Version 2)
Quarter: 2016Q2

REPORT INFORMATION
  Report Type: Spontaneous
  Country: US (occurrence: US)
  Receive Date: 20160311
  Receipt Date: 20160502
  Transmission Date: 20160815
  Serious: No
  Sender: FDA-Public Use
  Company Number: US-TAKEDA-2016MPI001677

PATIENT
  Sex: Male

DRUGS (2)
  1. NINLARO [Suspect]
     Active Substance: IXAZOMIB
     Indication: PLASMA CELL MYELOMA
     Dosage: 4 MG, QD
     Route: 048
  2. NINLARO [Suspect]
     Active Substance: IXAZOMIB
     Dosage: 3 MG, QD
     Route: 048

REACTIONS (5)
  - Eye pain [Unknown]
  - Toothache [Unknown]
  - Gingival pain [Unknown]
  - Gingival swelling [Unknown]
  - Swollen tongue [Unknown]
